FAERS Safety Report 9552049 (Version 1)
Quarter: 2013Q3

REPORT INFORMATION
  Report Type: Spontaneous
  Country: US (occurrence: US)
  Receive Date: 20130925
  Receipt Date: 20130925
  Transmission Date: 20140515
  Serious: Yes (Other)
  Sender: FDA-Public Use
  Company Number: PHEH2013US019531

PATIENT
  Age: 86 Year
  Sex: Female

DRUGS (9)
  1. EXELON PATCH [Suspect]
     Dosage: 4.6 MG/ 24 HOURS
     Route: 062
     Dates: start: 201306
  2. EXELON PATCH [Suspect]
     Dosage: 9.5 MG,/24 HRS
     Route: 062
  3. EXELON PATCH [Suspect]
     Dosage: 4.6 MG/ 24 HRS
     Route: 062
  4. EXELON [Suspect]
     Dosage: UNK UKN, UNK
  5. VITAMIN D3 [Concomitant]
     Dosage: UNK UKN, UNK
  6. LISINOPRIL HYDROCHLORTHIAZID [Concomitant]
     Dosage: UNK UKN, UNK
  7. METOPROLOL [Concomitant]
     Dosage: UNK UKN, UNK
  8. TYROSINE [Concomitant]
     Dosage: UNK UKN, UNK
  9. ALIGN [Concomitant]
     Dosage: UNK UKN, UNK

REACTIONS (5)
  - Senile dementia [Unknown]
  - Memory impairment [Unknown]
  - Mental impairment [Unknown]
  - Blood potassium abnormal [Unknown]
  - Muscle spasms [Unknown]
